FAERS Safety Report 15119777 (Version 2)
Quarter: 2018Q3

REPORT INFORMATION
  Report Type: Spontaneous
  Country: US (occurrence: US)
  Receive Date: 20180709
  Receipt Date: 20180823
  Transmission Date: 20181010
  Serious: No
  Sender: FDA-Public Use
  Company Number: US-GLENMARK PHARMACEUTICALS-2017GMK030415

PATIENT

DRUGS (1)
  1. VERAPAMIL [Suspect]
     Active Substance: VERAPAMIL HYDROCHLORIDE
     Indication: HYPERTENSION
     Dosage: 240 MG, (ONE TABLET A DAY)
     Route: 048
     Dates: start: 201711

REACTIONS (3)
  - Blood pressure increased [Unknown]
  - Drug effect decreased [Unknown]
  - Product size issue [Unknown]

NARRATIVE: CASE EVENT DATE: 201712
